FAERS Safety Report 5553633-3 (Version None)
Quarter: 2007Q4

REPORT INFORMATION
  Report Type: 
  Country: None (occurrence: None)
  Receive Date: 20071130
  Receipt Date: 20070924
  Transmission Date: 20080405
  Serious: No
  Sender: FDA-Public Use
  Company Number: 2006PV014842

PATIENT
  Age: 63 Year
  Sex: Female
  Weight: 74.8 kg

DRUGS (16)
  1. EXENATIDE(EXENATIDE) PEN,DISPOSABLE [Suspect]
     Indication: TYPE 1 DIABETES MELLITUS
     Dosage: SEE IMAGE
     Route: 058
     Dates: start: 20060301, end: 20060401
  2. EXENATIDE(EXENATIDE) PEN,DISPOSABLE [Suspect]
     Indication: TYPE 1 DIABETES MELLITUS
     Dosage: SEE IMAGE
     Route: 058
     Dates: start: 20060401, end: 20060530
  3. EXENATIDE(EXENATIDE) PEN,DISPOSABLE [Suspect]
     Indication: TYPE 1 DIABETES MELLITUS
     Dosage: SEE IMAGE
     Route: 058
     Dates: start: 20060401, end: 20060601
  4. EXENATIDE(EXENATIDE) PEN,DISPOSABLE [Suspect]
     Indication: TYPE 1 DIABETES MELLITUS
     Dosage: SEE IMAGE
     Route: 058
     Dates: start: 20060101
  5. EXENATIDE(EXENATIDE) PEN,DISPOSABLE [Suspect]
     Indication: TYPE 1 DIABETES MELLITUS
     Dosage: SEE IMAGE
     Route: 058
     Dates: start: 20060101
  6. EXENATIDE(EXENATIDE) PEN,DISPOSABLE [Suspect]
     Indication: TYPE 1 DIABETES MELLITUS
     Dosage: SEE IMAGE
     Route: 058
     Dates: start: 20060601
  7. EXENATIDE(EXENATIDE) PEN,DISPOSABLE [Suspect]
  8. EXENATIDE(EXENATIDE) PEN,DISPOSABLE [Suspect]
  9. EXENATIDE(EXENATIDE) PEN,DISPOSABLE [Suspect]
  10. METAGLIP (GLIPIZIDE, METFORMIN HYDROCHLORIDE) TABLET [Concomitant]
  11. INSULIN [Concomitant]
  12. GLUCOPHAGE [Concomitant]
  13. GLUCOPHAGE [Concomitant]
  14. METFORMIN HCL [Concomitant]
  15. ... [Concomitant]
  16. ... [Concomitant]

REACTIONS (11)
  - ALOPECIA [None]
  - ASTHENIA [None]
  - BLOOD GLUCOSE DECREASED [None]
  - CHILLS [None]
  - DECREASED APPETITE [None]
  - FEELING COLD [None]
  - FEELING JITTERY [None]
  - NAUSEA [None]
  - TREMOR [None]
  - VOMITING [None]
  - WEIGHT DECREASED [None]
